FAERS Safety Report 18148767 (Version 1)
Quarter: 2020Q3

REPORT INFORMATION
  Report Type: Report from Study
  Country: DE (occurrence: CO)
  Receive Date: 20200813
  Receipt Date: 20200813
  Transmission Date: 20201103
  Serious: Yes (Hospitalization, Other)
  Sender: FDA-Public Use
  Company Number: DE-ACTELION-A-US2020-208276

PATIENT
  Age: 41 Year
  Sex: Female

DRUGS (2)
  1. ADEMPAS [Suspect]
     Active Substance: RIOCIGUAT
     Indication: PULMONARY ARTERIAL HYPERTENSION
     Dosage: 2.5 MG, TID
     Route: 048
     Dates: start: 20190108
  2. VENTAVIS [Suspect]
     Active Substance: ILOPROST
     Indication: PULMONARY ARTERIAL HYPERTENSION
     Dosage: UNK
     Route: 055
     Dates: start: 20181220

REACTIONS (9)
  - Nasopharyngitis [Unknown]
  - Pneumonia [Not Recovered/Not Resolved]
  - Syncope [Not Recovered/Not Resolved]
  - Myalgia [Unknown]
  - Respiratory distress [Unknown]
  - Cough [Unknown]
  - Cardiac disorder [Unknown]
  - Oxygen saturation decreased [Unknown]
  - Inappropriate schedule of product administration [Unknown]

NARRATIVE: CASE EVENT DATE: 20200731
